FAERS Safety Report 14110975 (Version 2)
Quarter: 2017Q4

REPORT INFORMATION
  Report Type: Spontaneous
  Country: CH (occurrence: CH)
  Receive Date: 20171020
  Receipt Date: 20171101
  Transmission Date: 20180321
  Serious: Yes (Hospitalization, Other)
  Sender: FDA-Public Use
  Company Number: CH-PFIZER INC-2017449454

PATIENT
  Age: 70 Year
  Sex: Female
  Weight: 72.3 kg

DRUGS (6)
  1. LOSARTAN HCT ACTAVIS [Concomitant]
     Dosage: 1 DF 1X/DAY (100/12.5 MG)
     Route: 048
  2. TOVIAZ [Suspect]
     Active Substance: FESOTERODINE FUMARATE
     Indication: URINARY INCONTINENCE
     Dosage: 4 MG, 1X/DAY
     Route: 048
     Dates: start: 201708, end: 201709
  3. SOTALOL MEPHA [Concomitant]
     Active Substance: SOTALOL HYDROCHLORIDE
     Dosage: 80MG, 2X/DAY
     Route: 048
  4. DAFLON [Concomitant]
     Active Substance: DIOSMIN\HESPERIDIN
     Dosage: 500MG, 2X/DAY (DAFLON 500 FILM-COATED TABLET)
     Route: 048
  5. ASPIRIN CARDIO [Concomitant]
     Active Substance: ASPIRIN
     Dosage: 100MG, 1X/DAY
     Route: 048
  6. CONDROSULF GRN [Concomitant]
     Active Substance: SODIUM CHONDROITIN SULFATE
     Dosage: 1 DF, 1X/DAY (CONDROSULF 800 TABLET)
     Route: 048

REACTIONS (5)
  - Vomiting [Recovered/Resolved]
  - Vertigo [Recovered/Resolved]
  - Nausea [Recovered/Resolved]
  - Vestibular disorder [Recovered/Resolved]
  - Hypokalaemia [Unknown]

NARRATIVE: CASE EVENT DATE: 201708
